FAERS Safety Report 16457976 (Version 5)
Quarter: 2019Q3

REPORT INFORMATION
  Report Type: Report from Study
  Country: None (occurrence: ES)
  Receive Date: 20190620
  Receipt Date: 20190730
  Transmission Date: 20191004
  Serious: No
  Sender: FDA-Public Use
  Company Number: ES-ABBVIE-19S-144-2827432-00

PATIENT
  Age: 69 Year
  Sex: Female
  Weight: 66 kg

DRUGS (4)
  1. STALEVO [Concomitant]
     Active Substance: CARBIDOPA\ENTACAPONE\LEVODOPA
     Indication: PRODUCT USED FOR UNKNOWN INDICATION
     Dosage: UNKNOWN BUT INCREASED TO NORMAL
     Route: 048
     Dates: start: 201906
  2. DUODOPA [Suspect]
     Active Substance: CARBIDOPA\LEVODOPA
     Indication: PARKINSON^S DISEASE
     Route: 050
     Dates: start: 20190405, end: 20190708
  3. DUODOPA [Suspect]
     Active Substance: CARBIDOPA\LEVODOPA
     Dosage: DOSE LOWERED BY 0.2 ML/H
     Route: 050
     Dates: start: 20190708, end: 20190716
  4. DUODOPA [Suspect]
     Active Substance: CARBIDOPA\LEVODOPA
     Dosage: LOWER ALL DOSES
     Route: 050
     Dates: start: 20190716

REACTIONS (7)
  - Nervousness [Recovered/Resolved]
  - Obsessive-compulsive disorder [Recovering/Resolving]
  - On and off phenomenon [Recovering/Resolving]
  - Fall [Recovered/Resolved]
  - Gambling disorder [Recovered/Resolved]
  - Agitation [Recovered/Resolved]
  - Impulse-control disorder [Recovering/Resolving]

NARRATIVE: CASE EVENT DATE: 2019
